FAERS Safety Report 10448202 (Version 1)
Quarter: 2014Q3

REPORT INFORMATION
  Report Type: Spontaneous
  Country: LT (occurrence: LT)
  Receive Date: 20140911
  Receipt Date: 20140911
  Transmission Date: 20150326
  Serious: Yes (Other)
  Sender: FDA-Public Use
  Company Number: LT-GLAXOSMITHKLINE-B1032328A

PATIENT
  Age: 72 Year
  Sex: Male

DRUGS (4)
  1. IMOVAN [Concomitant]
     Indication: RENAL TRANSPLANT
     Route: 065
  2. COMBODART [Suspect]
     Active Substance: DUTASTERIDE\TAMSULOSIN
     Indication: BENIGN PROSTATIC HYPERPLASIA
     Route: 065
     Dates: start: 201405, end: 201406
  3. AVODART [Suspect]
     Active Substance: DUTASTERIDE
     Indication: BENIGN PROSTATIC HYPERPLASIA
     Route: 065
     Dates: start: 201310, end: 201404
  4. SANDIVAN [Concomitant]
     Indication: RENAL TRANSPLANT
     Route: 065

REACTIONS (3)
  - Angina pectoris [Recovered/Resolved]
  - Urine flow decreased [Recovered/Resolved]
  - Breast pain [Recovered/Resolved]

NARRATIVE: CASE EVENT DATE: 201310
